FAERS Safety Report 22080176 (Version 1)
Quarter: 2023Q1

REPORT INFORMATION
  Report Type: Other
  Country: PT (occurrence: None)
  Receive Date: 20230309
  Receipt Date: 20230309
  Transmission Date: 20230417
  Serious: No
  Sender: FDA-Public Use
  Company Number: PT-ROCHE-3305050

PATIENT
  Age: 34 Year
  Sex: Female

DRUGS (3)
  1. OCRELIZUMAB [Suspect]
     Active Substance: OCRELIZUMAB
     Indication: Relapsing-remitting multiple sclerosis
     Dosage: STUDY DRUG FREQUENCY Q6M, SHE RECEIVED SUBSEQUENT DOSE ON  25/FEB/2021,
     Route: 042
     Dates: start: 20210211
  2. OCRELIZUMAB [Suspect]
     Active Substance: OCRELIZUMAB
     Dosage: SHE RECEIVED SUBSEQUENT DOSE ON 18/AUG/2022, 18/FEB/2022,
     Route: 042
     Dates: start: 20210818, end: 20210818
  3. ETONOGESTREL [Concomitant]
     Active Substance: ETONOGESTREL
     Indication: Contraception
     Dosage: MEDICATION ONGOING YES?MEDICATION FREQUENCY QD
     Route: 058

REACTIONS (1)
  - Papilloma viral infection [Recovering/Resolving]

NARRATIVE: CASE EVENT DATE: 20230124
